FAERS Safety Report 4296546-X (Version None)
Quarter: 2004Q1

REPORT INFORMATION
  Report Type: 
  Country: None (occurrence: None)
  Receive Date: 20040122
  Receipt Date: 20031116
  Transmission Date: 20041129
  Serious: No
  Sender: FDA-Public Use
  Company Number: 2003118907

PATIENT
  Sex: Female

DRUGS (1)
  1. RELPAX [Suspect]
     Indication: ILL-DEFINED DISORDER

REACTIONS (4)
  - ASTHENIA [None]
  - CHEST PAIN [None]
  - HYPOAESTHESIA [None]
  - MUSCLE CONTRACTIONS INVOLUNTARY [None]
